FAERS Safety Report 24168198 (Version 2)
Quarter: 2024Q3

REPORT INFORMATION
  Report Type: Report from Study
  Country: CA (occurrence: None)
  Receive Date: 20240802
  Receipt Date: 20240808
  Transmission Date: 20241016
  Serious: Yes (Other)
  Sender: ASTRAZENECA
  Company Number: 2024A172028

PATIENT
  Sex: Female

DRUGS (2)
  1. CALQUENCE [Suspect]
     Active Substance: ACALABRUTINIB
     Indication: Chronic lymphocytic leukaemia
     Route: 048
     Dates: start: 20210901, end: 20240610
  2. VENETOCLAX [Concomitant]
     Active Substance: VENETOCLAX
     Dates: start: 20240604

REACTIONS (3)
  - Splenomegaly [Unknown]
  - Malignant neoplasm progression [Unknown]
  - Overdose [Unknown]
